FAERS Safety Report 10330433 (Version 1)
Quarter: 2014Q3

REPORT INFORMATION
  Report Type: Spontaneous
  Country: US (occurrence: US)
  Receive Date: 20140722
  Receipt Date: 20140722
  Transmission Date: 20150326
  Serious: No
  Sender: FDA-Public Use
  Company Number: US-ASTRAZENECA-2014SE52708

PATIENT
  Sex: Male

DRUGS (1)
  1. NEXIUM 24HR [Suspect]
     Active Substance: ESOMEPRAZOLE MAGNESIUM
     Route: 048

REACTIONS (6)
  - Eructation [Unknown]
  - Poor quality drug administered [Unknown]
  - Intentional product misuse [Unknown]
  - Malaise [Unknown]
  - Dysgeusia [Unknown]
  - Oesophageal pain [Unknown]
